FAERS Safety Report 23405359 (Version 2)
Quarter: 2024Q1

REPORT INFORMATION
  Report Type: Report from Study
  Country: NL (occurrence: NL)
  Receive Date: 20240116
  Receipt Date: 20240131
  Transmission Date: 20240409
  Serious: Yes (Other)
  Sender: FDA-Public Use
  Company Number: NL-JNJFOC-20240120939

PATIENT
  Age: 61 Year
  Sex: Female

DRUGS (1)
  1. EPOPROSTENOL SODIUM [Suspect]
     Active Substance: EPOPROSTENOL SODIUM
     Indication: Pulmonary arterial hypertension
     Dosage: CURRENT PRESCRIPTION PERIOD: 2023-03-09 TO 2024-03-07
     Route: 042
     Dates: start: 20230309

REACTIONS (3)
  - Altered state of consciousness [Recovering/Resolving]
  - Device malfunction [Unknown]
  - Product administration interrupted [Unknown]

NARRATIVE: CASE EVENT DATE: 20240105
